FAERS Safety Report 5847336-5 (Version None)
Quarter: 2008Q3

REPORT INFORMATION
  Report Type: 
  Country: None (occurrence: None)
  Receive Date: 20080813
  Receipt Date: 20080806
  Transmission Date: 20090109
  Serious: Yes (Life-Threatening, Hospitalization, Other)
  Sender: FDA-Public Use
  Company Number: 14169

PATIENT
  Age: 65 Year
  Sex: Male
  Weight: 80 kg

DRUGS (19)
  1. METHYLENE BLUE [Suspect]
     Indication: SCAN PARATHYROID
     Dosage: 650 MG DAILY IV
     Route: 042
     Dates: start: 20050722, end: 20050722
  2. METHYLENE BLUE [Suspect]
     Indication: SCAN PARATHYROID
  3. INSULIN [Concomitant]
  4. QUININE SULPHATE [Concomitant]
  5. OMEPRAZOLE [Concomitant]
  6. CLOPIDOGREL [Concomitant]
  7. ATORVASTATIN [Concomitant]
  8. ALFACALCIDOL [Concomitant]
  9. CITALOPRAM HYDROBROMIDE [Concomitant]
  10. ALUMINUM HYDROXIDE [Interacting]
  11. SILDENAFIL CITRATE [Concomitant]
  12. PROPOFOL [Concomitant]
  13. FENTANYL [Concomitant]
  14. ATRACURIUM BESYLATE [Concomitant]
  15. REMIFENTANIL [Concomitant]
  16. SEVOFLURANE [Concomitant]
  17. OXYGEN [Concomitant]
  18. NITROUS OXIDE W/ OXYGEN [Concomitant]
  19. MORPHINE [Concomitant]

REACTIONS (31)
  - ACIDOSIS [None]
  - AGITATION [None]
  - BLOOD LACTIC ACID INCREASED [None]
  - BUNDLE BRANCH BLOCK LEFT [None]
  - CALCIUM IONISED DECREASED [None]
  - CARDIAC DISORDER [None]
  - CHILLS [None]
  - COMMUNICATION DISORDER [None]
  - CONFUSIONAL STATE [None]
  - DELAYED RECOVERY FROM ANAESTHESIA [None]
  - DEPRESSED LEVEL OF CONSCIOUSNESS [None]
  - DISORIENTATION [None]
  - DRUG INTERACTION [None]
  - DRUG TOXICITY [None]
  - ELECTROCARDIOGRAM ST SEGMENT DEPRESSION [None]
  - EXTRASYSTOLES [None]
  - HAEMODYNAMIC INSTABILITY [None]
  - HYPERCAPNIA [None]
  - HYPERHIDROSIS [None]
  - HYPERKALAEMIA [None]
  - HYPERPYREXIA [None]
  - HYPERTENSION [None]
  - HYPERTHERMIA MALIGNANT [None]
  - INCORRECT DRUG ADMINISTRATION RATE [None]
  - LOW CARDIAC OUTPUT SYNDROME [None]
  - OXYGEN SATURATION DECREASED [None]
  - PO2 DECREASED [None]
  - POST PROCEDURAL COMPLICATION [None]
  - SINUS TACHYCARDIA [None]
  - TREMOR [None]
  - VOMITING [None]
